FAERS Safety Report 5611280-9 (Version None)
Quarter: 2008Q1

REPORT INFORMATION
  Report Type: 
  Country: None (occurrence: None)
  Receive Date: 20080201
  Receipt Date: 20080128
  Transmission Date: 20080703
  Serious: Yes (Death, Other)
  Sender: FDA-Public Use
  Company Number: US-PFIZER INC-2006150049

PATIENT
  Sex: Male
  Weight: 74.8 kg

DRUGS (2)
  1. BEXTRA [Suspect]
     Indication: ARTHRITIS
     Route: 048
     Dates: start: 20030501, end: 20040501
  2. VIOXX [Suspect]
     Indication: ARTHRITIS
     Dates: start: 20040501, end: 20040801

REACTIONS (1)
  - MYOCARDIAL INFARCTION [None]
